FAERS Safety Report 10891968 (Version 2)
Quarter: 2015Q2

REPORT INFORMATION
  Report Type: Spontaneous
  Country: IT (occurrence: IT)
  Receive Date: 20150306
  Receipt Date: 20150604
  Transmission Date: 20150821
  Serious: Yes (Hospitalization)
  Sender: FDA-Public Use
  Company Number: IT-TEVA-545124ACC

PATIENT
  Age: 71 Year
  Sex: Female

DRUGS (1)
  1. LITHIUM CARBONATE. [Suspect]
     Active Substance: LITHIUM CARBONATE
     Indication: PSYCHOTIC DISORDER
     Dosage: 900 MILLIGRAM DAILY;
     Route: 048

REACTIONS (4)
  - Hyperamylasaemia [Unknown]
  - Overdose [Unknown]
  - Acute kidney injury [Unknown]
  - Sopor [Unknown]

NARRATIVE: CASE EVENT DATE: 20141010
